FAERS Safety Report 4993059-4 (Version None)
Quarter: 2006Q1

REPORT INFORMATION
  Report Type: 
  Country: None (occurrence: None)
  Receive Date: 20060313
  Receipt Date: 20060116
  Transmission Date: 20060701
  Serious: No
  Sender: FDA-Public Use
  Company Number: 2006-BP-00466BP

PATIENT
  Sex: Female

DRUGS (2)
  1. SPIRIVA [Suspect]
     Dosage: 18 MCG (18 MCG,1 IN 1 D),IH
     Dates: start: 20060112
  2. TOPROL-XL [Concomitant]

REACTIONS (2)
  - PAIN [None]
  - TACHYCARDIA [None]
